FAERS Safety Report 23957751 (Version 2)
Quarter: 2024Q3

REPORT INFORMATION
  Report Type: Spontaneous
  Country: PT (occurrence: PT)
  Receive Date: 20240610
  Receipt Date: 20240730
  Transmission Date: 20241016
  Serious: Yes (Disabling)
  Sender: GILEAD
  Company Number: None

PATIENT
  Age: 59 Year
  Sex: Male
  Weight: 85 kg

DRUGS (2)
  1. BIKTARVY [Suspect]
     Active Substance: BICTEGRAVIR SODIUM\EMTRICITABINE\TENOFOVIR ALAFENAMIDE FUMARATE
     Indication: HIV infection
     Dosage: 1 DOSAGE FORM, QD
     Route: 048
     Dates: start: 20230614
  2. DIAZEPAM [Suspect]
     Active Substance: DIAZEPAM
     Indication: Panic attack
     Dosage: 10 MG/2/3 DAILY
     Route: 048
     Dates: start: 20080730

REACTIONS (3)
  - Loss of libido [Recovering/Resolving]
  - Dizziness [Recovering/Resolving]
  - Headache [Recovered/Resolved]

NARRATIVE: CASE EVENT DATE: 20230614
